FAERS Safety Report 5068692-4 (Version None)
Quarter: 2006Q3

REPORT INFORMATION
  Report Type: 
  Country: None (occurrence: None)
  Receive Date: 20060802
  Receipt Date: 20060215
  Transmission Date: 20061208
  Serious: No
  Sender: FDA-Public Use
  Company Number: US-BRISTOL-MYERS SQUIBB COMPANY-13284716

PATIENT
  Age: 76 Year
  Sex: Male
  Weight: 86 kg

DRUGS (6)
  1. COUMADIN [Suspect]
     Route: 048
  2. PACERONE [Interacting]
     Indication: ATRIAL FIBRILLATION
     Route: 048
     Dates: start: 20031001, end: 20051115
  3. GLUCOPHAGE [Concomitant]
  4. ALTACE [Concomitant]
  5. TOPROL-XL [Concomitant]
     Dosage: DURATION OF THERAPY:  4-5 YEARS
  6. LOPID [Concomitant]

REACTIONS (14)
  - BACK PAIN [None]
  - BALANCE DISORDER [None]
  - COORDINATION ABNORMAL [None]
  - DRUG INTERACTION [None]
  - DRY EYE [None]
  - GAIT DISTURBANCE [None]
  - HYPOAESTHESIA [None]
  - INTERNATIONAL NORMALISED RATIO INCREASED [None]
  - MASKED FACIES [None]
  - MUSCLE SPASMS [None]
  - MUSCULAR WEAKNESS [None]
  - MYALGIA [None]
  - PHOTOSENSITIVITY REACTION [None]
  - TREMOR [None]
